FAERS Safety Report 5934915-X (Version None)
Quarter: 2008Q4

REPORT INFORMATION
  Report Type: 
  Country: None (occurrence: None)
  Receive Date: 20081027
  Receipt Date: 20081017
  Transmission Date: 20090506
  Serious: Yes (Other)
  Sender: FDA-Public Use
  Company Number: OSCN-PR-0810L-0573

PATIENT
  Sex: Female

DRUGS (1)
  1. OMNISCAN [Suspect]
     Indication: BLOOD PROLACTIN INCREASED
     Dosage: 8 ADMINISTRATIONS BETWEEN SEP-2004

REACTIONS (7)
  - CEREBRAL CALCIFICATION [None]
  - DISEASE PROGRESSION [None]
  - JOINT RANGE OF MOTION DECREASED [None]
  - MENINGEAL DISORDER [None]
  - NEPHROGENIC SYSTEMIC FIBROSIS [None]
  - PITUITARY TUMOUR BENIGN [None]
  - SKIN HYPERTROPHY [None]
